FAERS Safety Report 25968854 (Version 1)
Quarter: 2025Q4

REPORT INFORMATION
  Report Type: Spontaneous
  Country: US (occurrence: None)
  Receive Date: 20251027
  Receipt Date: 20251027
  Transmission Date: 20260118
  Serious: Yes (Hospitalization)
  Sender: FDA-CTU
  Company Number: None

PATIENT
  Age: 72 Year
  Sex: Male

DRUGS (14)
  1. TACROLIMUS [Suspect]
     Active Substance: TACROLIMUS
     Indication: Heart transplant
     Dosage: FREQUENCY : TWICE A DAY;?
     Route: 048
     Dates: start: 20250930
  2. PANTOPRAZOLE [Concomitant]
     Active Substance: PANTOPRAZOLE
  3. PRAVASTATIN [Concomitant]
     Active Substance: PRAVASTATIN
  4. MELATONIN [Concomitant]
     Active Substance: MELATONIN
  5. ASPIRIN [Concomitant]
     Active Substance: ASPIRIN
  6. PREDNISONE [Concomitant]
     Active Substance: PREDNISONE
  7. VALGANCICLOVIR [Concomitant]
     Active Substance: VALGANCICLOVIR
  8. AMLODIPINE BESYLATE [Concomitant]
     Active Substance: AMLODIPINE BESYLATE
  9. VELTASSA [Concomitant]
     Active Substance: PATIROMER
  10. SULFAMETHOXAZOLE\TRIMETHOPRIM [Concomitant]
     Active Substance: SULFAMETHOXAZOLE\TRIMETHOPRIM
  11. ITRACONAZOLE [Concomitant]
     Active Substance: ITRACONAZOLE
  12. MYCOPHENOLIC ACID [Concomitant]
     Active Substance: MYCOPHENOLIC ACID
  13. TAMSULOSIN [Concomitant]
     Active Substance: TAMSULOSIN
  14. LEVETIRACETAM [Concomitant]
     Active Substance: LEVETIRACETAM

REACTIONS (1)
  - Postoperative wound infection [None]
